FAERS Safety Report 7236880-4 (Version None)
Quarter: 2011Q1

REPORT INFORMATION
  Report Type: 
  Country: None (occurrence: None)
  Receive Date: 20110120
  Receipt Date: 20101110
  Transmission Date: 20110831
  Serious: Yes (Other)
  Sender: FDA-Public Use
  Company Number: NL-AMGEN-NLDSP2010003398

PATIENT

DRUGS (7)
  1. ENBREL [Suspect]
     Indication: RHEUMATOID ARTHRITIS
     Dosage: 50 MG, QWK
     Dates: start: 20100621
  2. ANTIHYPERTENSIVES [Concomitant]
  3. FOLIC ACID [Concomitant]
     Dosage: UNKNOWN
  4. PRILOSEC [Concomitant]
     Dosage: UNKNOWN
  5. SALAZOPYRIN [Concomitant]
     Dosage: UNKNOWN
  6. METHOTREXATE [Concomitant]
  7. PLAQUENIL [Concomitant]
     Dosage: UNKNOWN

REACTIONS (10)
  - HYPERTENSION [None]
  - RASH PAPULAR [None]
  - INJECTION SITE SWELLING [None]
  - INJECTION SITE PRURITUS [None]
  - INJECTION SITE ERYTHEMA [None]
  - HEADACHE [None]
  - SINUSITIS [None]
  - INJECTION SITE NODULE [None]
  - FUNGAL INFECTION [None]
  - INJECTION SITE INDURATION [None]
